FAERS Safety Report 14742150 (Version 1)
Quarter: 2018Q2

REPORT INFORMATION
  Report Type: Spontaneous
  Country: US (occurrence: US)
  Receive Date: 20180405
  Receipt Date: 20180405
  Transmission Date: 20180711
  Serious: Yes (Disabling, Other)
  Sender: FDA-Public Use
  Company Number: None

PATIENT
  Age: 41 Year
  Sex: Female
  Weight: 65.25 kg

DRUGS (14)
  1. SUBOXONE [Suspect]
     Active Substance: BUPRENORPHINE HYDROCHLORIDE\NALOXONE HYDROCHLORIDE
     Indication: DRUG DEPENDENCE
     Dosage: 1 FILM; TWICE A DAY SUBLINGUAL?
     Route: 060
     Dates: start: 20180322, end: 20180405
  2. GAS-X [Concomitant]
     Active Substance: DIMETHICONE
  3. SUBOXONE [Suspect]
     Active Substance: BUPRENORPHINE HYDROCHLORIDE\NALOXONE HYDROCHLORIDE
     Indication: PAIN
     Dosage: 1 FILM; TWICE A DAY SUBLINGUAL?
     Route: 060
     Dates: start: 20180322, end: 20180405
  4. BENTYL [Concomitant]
     Active Substance: DICYCLOMINE HYDROCHLORIDE
  5. WOMEN^S MULTI VITAMIN [Concomitant]
  6. NEURONTIN [Concomitant]
     Active Substance: GABAPENTIN
  7. CLONAZEPAM. [Concomitant]
     Active Substance: CLONAZEPAM
  8. CLONIDINE. [Concomitant]
     Active Substance: CLONIDINE
  9. MULTI WOMEN^S VITAMIN [Concomitant]
  10. PROTONIX [Concomitant]
     Active Substance: PANTOPRAZOLE SODIUM
  11. IBUPROFEN. [Concomitant]
     Active Substance: IBUPROFEN
  12. SUBOXONE [Concomitant]
     Active Substance: BUPRENORPHINE HYDROCHLORIDE\NALOXONE HYDROCHLORIDE
  13. ZOFRAN [Concomitant]
     Active Substance: ONDANSETRON HYDROCHLORIDE
  14. TYLENOL [Concomitant]
     Active Substance: ACETAMINOPHEN

REACTIONS (8)
  - Mood swings [None]
  - Thinking abnormal [None]
  - Drug effect decreased [None]
  - Malaise [None]
  - Depression [None]
  - Product shape issue [None]
  - Product quality issue [None]
  - Withdrawal syndrome [None]

NARRATIVE: CASE EVENT DATE: 20180322
